FAERS Safety Report 12775542 (Version 1)
Quarter: 2016Q3

REPORT INFORMATION
  Report Type: Spontaneous
  Country: US (occurrence: US)
  Receive Date: 20160923
  Receipt Date: 20160923
  Transmission Date: 20161109
  Serious: No
  Sender: FDA-Public Use
  Company Number: US-BAUSCH-BL-2016-001997

PATIENT
  Age: 38 Year
  Sex: Male

DRUGS (8)
  1. LOXAPINE. [Concomitant]
     Active Substance: LOXAPINE
     Indication: PSYCHOTIC DISORDER
     Route: 048
     Dates: start: 2014
  2. MOVIPREP [Suspect]
     Active Substance: ASCORBIC ACID\POLYETHYLENE GLYCOL 3350\POTASSIUM CHLORIDE\SODIUM ASCORBATE\SODIUM CHLORIDE\SODIUM SULFATE
     Indication: COLONOSCOPY
     Route: 048
     Dates: start: 20160121, end: 20160121
  3. CLONAZEPAM. [Concomitant]
     Active Substance: CLONAZEPAM
     Indication: PANIC ATTACK
     Route: 048
     Dates: start: 201501
  4. VITAMIN D [Concomitant]
     Active Substance: CHOLECALCIFEROL
     Indication: SUPPLEMENTATION THERAPY
     Route: 048
     Dates: start: 2011
  5. OXCARBAZEPINE. [Concomitant]
     Active Substance: OXCARBAZEPINE
     Indication: AFFECTIVE DISORDER
     Route: 048
     Dates: start: 2014
  6. MIRTAZEPINE [Concomitant]
     Active Substance: MIRTAZAPINE
     Indication: ANTIDEPRESSANT THERAPY
     Route: 048
     Dates: start: 2014
  7. PROLIXIN [Concomitant]
     Active Substance: FLUPHENAZINE HYDROCHLORIDE
     Indication: PSYCHOTIC DISORDER
     Route: 048
     Dates: start: 2015
  8. LEVOTHYROXINE. [Concomitant]
     Active Substance: LEVOTHYROXINE
     Indication: THYROID DISORDER
     Route: 048
     Dates: start: 2013

REACTIONS (2)
  - Diarrhoea [Recovered/Resolved]
  - Treatment noncompliance [Unknown]

NARRATIVE: CASE EVENT DATE: 20160121
